FAERS Safety Report 15218343 (Version 2)
Quarter: 2018Q3

REPORT INFORMATION
  Report Type: Report from Study
  Country: None (occurrence: BR)
  Receive Date: 20180730
  Receipt Date: 20180903
  Transmission Date: 20181010
  Serious: Yes (Other)
  Sender: FDA-Public Use
  Company Number: BR-ABBVIE-18K-020-2434594-00

PATIENT
  Sex: Female

DRUGS (1)
  1. HUMIRA [Suspect]
     Active Substance: ADALIMUMAB
     Indication: PSORIATIC ARTHROPATHY
     Route: 058
     Dates: start: 20170511

REACTIONS (5)
  - Wound [Unknown]
  - Abdominal hernia [Unknown]
  - Abdominal hernia [Recovered/Resolved]
  - Psoriatic arthropathy [Unknown]
  - Arthralgia [Recovered/Resolved]
